FAERS Safety Report 17521447 (Version 2)
Quarter: 2020Q1

REPORT INFORMATION
  Report Type: Spontaneous
  Country: US (occurrence: US)
  Receive Date: 20200310
  Receipt Date: 20200312
  Transmission Date: 20200409
  Serious: No
  Sender: FDA-Public Use
  Company Number: US-TEVA-2020-US-1195476

PATIENT
  Sex: Female

DRUGS (2)
  1. CLONAZEPAM ACCORD [Suspect]
     Active Substance: CLONAZEPAM
     Indication: SLEEP DISORDER
     Route: 065
  2. CLONAZEPAM ACCORD [Suspect]
     Active Substance: CLONAZEPAM
     Indication: ANXIETY

REACTIONS (4)
  - Wrong technique in product usage process [Unknown]
  - Lethargy [Unknown]
  - Anxiety [Unknown]
  - Drug ineffective [Unknown]
